FAERS Safety Report 16020979 (Version 1)
Quarter: 2019Q1

REPORT INFORMATION
  Report Type: Spontaneous
  Country: US (occurrence: US)
  Receive Date: 20190301
  Receipt Date: 20190301
  Transmission Date: 20190418
  Serious: No
  Sender: FDA-Public Use
  Company Number: US-PFIZER INC-2019083210

PATIENT
  Age: 55 Year
  Sex: Male

DRUGS (2)
  1. SOMAVERT [Suspect]
     Active Substance: PEGVISOMANT
     Dosage: 20 MG, DAILY
  2. SOMAVERT [Suspect]
     Active Substance: PEGVISOMANT
     Dosage: 30 MG, DAILY

REACTIONS (11)
  - Weight increased [Unknown]
  - Low density lipoprotein increased [Unknown]
  - Blood testosterone decreased [Unknown]
  - Blood urea increased [Unknown]
  - Non-high-density lipoprotein cholesterol increased [Unknown]
  - Insulin-like growth factor decreased [Unknown]
  - Blood luteinising hormone decreased [Unknown]
  - Blood cholesterol increased [Unknown]
  - Blood triglycerides increased [Unknown]
  - Blood growth hormone increased [Unknown]
  - Blood testosterone free decreased [Unknown]

NARRATIVE: CASE EVENT DATE: 201304
